FAERS Safety Report 6577236-7 (Version None)
Quarter: 2010Q1

REPORT INFORMATION
  Report Type: 
  Country: None (occurrence: None)
  Receive Date: 20100210
  Receipt Date: 20100201
  Transmission Date: 20100710
  Serious: Yes (Hospitalization)
  Sender: FDA-Public Use
  Company Number: US-SANOFI-AVENTIS-2009SA006544

PATIENT
  Sex: Male

DRUGS (13)
  1. OXALIPLATIN [Suspect]
     Route: 041
     Dates: start: 20091006, end: 20091006
  2. OXALIPLATIN [Suspect]
     Route: 041
     Dates: start: 20091026, end: 20091026
  3. 5-FU [Suspect]
     Route: 041
     Dates: start: 20091006
  4. 5-FU [Suspect]
     Route: 041
  5. M.V.I. [Concomitant]
  6. VITAMIN E [Concomitant]
     Dates: end: 20091026
  7. FLAGYL [Concomitant]
  8. EMLA [Concomitant]
  9. COMPAZINE [Concomitant]
  10. ZOFRAN [Concomitant]
  11. TRICOR [Concomitant]
  12. NEXIUM /UNK/ [Concomitant]
  13. FLONASE [Concomitant]
     Route: 045

REACTIONS (10)
  - ABDOMINAL PAIN [None]
  - ABDOMINAL PAIN LOWER [None]
  - ABDOMINAL PAIN UPPER [None]
  - ASTHENIA [None]
  - BLOOD AMYLASE INCREASED [None]
  - DIZZINESS [None]
  - DYSPNOEA [None]
  - FEBRILE NEUTROPENIA [None]
  - GASTROINTESTINAL DISORDER [None]
  - HYPOTENSION [None]
